FAERS Safety Report 15339966 (Version 2)
Quarter: 2018Q4

REPORT INFORMATION
  Report Type: Spontaneous
  Country: BR (occurrence: BR)
  Receive Date: 20180831
  Receipt Date: 20181031
  Transmission Date: 20190204
  Serious: Yes (Hospitalization)
  Sender: FDA-Public Use
  Company Number: BR-JNJFOC-20180839285

PATIENT
  Age: 91 Year
  Sex: Male

DRUGS (4)
  1. LOSARTAN. [Concomitant]
     Active Substance: LOSARTAN
     Indication: HYPERTENSION
     Dosage: 1 TABLET DAILY AND SOMETIMES 2 TABLETS DAILY
     Route: 048
  2. XARELTO [Suspect]
     Active Substance: RIVAROXABAN
     Indication: TRAUMATIC FRACTURE
     Route: 048
     Dates: start: 20180817, end: 20180820
  3. BUDESONIDE W/FORMOTEROL FUMARATE [Concomitant]
     Active Substance: BUDESONIDE\FORMOTEROL FUMARATE
     Indication: BRONCHITIS
     Dosage: TAKES ONLY IN CRISIS
     Route: 065
     Dates: start: 2016
  4. BUDESONIDE W/FORMOTEROL FUMARATE [Concomitant]
     Active Substance: BUDESONIDE\FORMOTEROL FUMARATE
     Indication: DYSPNOEA
     Dosage: TAKES ONLY IN CRISIS
     Route: 065
     Dates: start: 2016

REACTIONS (8)
  - Tongue movement disturbance [Recovered/Resolved]
  - Product use in unapproved indication [Unknown]
  - Hallucination, visual [Recovered/Resolved]
  - Aggression [Recovered/Resolved]
  - Confusional state [Recovered/Resolved]
  - Insomnia [Recovered/Resolved]
  - Wrong technique in product usage process [Recovered/Resolved]
  - Off label use [Unknown]

NARRATIVE: CASE EVENT DATE: 20180817
